FAERS Safety Report 25562996 (Version 7)
Quarter: 2025Q3

REPORT INFORMATION
  Report Type: Spontaneous
  Country: US (occurrence: US)
  Receive Date: 20250716
  Receipt Date: 20250915
  Transmission Date: 20251020
  Serious: Yes (Hospitalization, Other)
  Sender: ELI LILLY AND COMPANY
  Company Number: US-ELI_LILLY_AND_COMPANY-US202507003490

PATIENT
  Age: 67 Year
  Sex: Female

DRUGS (9)
  1. TADALAFIL [Suspect]
     Active Substance: TADALAFIL
     Indication: Product used for unknown indication
     Route: 065
  2. TADALAFIL [Suspect]
     Active Substance: TADALAFIL
     Route: 065
     Dates: end: 202506
  3. ORENITRAM [Suspect]
     Active Substance: TREPROSTINIL
     Indication: Pulmonary arterial hypertension
     Dosage: 1.25 MG, TID
     Route: 048
     Dates: start: 202504
  4. ORENITRAM [Suspect]
     Active Substance: TREPROSTINIL
     Dosage: 1.5 MG, TID
     Route: 048
  5. ORENITRAM [Suspect]
     Active Substance: TREPROSTINIL
     Dosage: 1.75 MG (USING 3-0.25MG AND 1-1MG TABLET), TID
     Route: 048
  6. ORENITRAM [Suspect]
     Active Substance: TREPROSTINIL
     Dosage: 1.875 MG, TID (#1-1MG + #3-0.25MG+ #1-0.125MG TABS)
     Route: 048
  7. ORENITRAM [Suspect]
     Active Substance: TREPROSTINIL
     Dosage: 2.375 MG (USING #2-1, #1-0.25, #10.125 TABLETS), TID
     Route: 048
  8. ORENITRAM [Suspect]
     Active Substance: TREPROSTINIL
     Dosage: 2.625 MG (USING #1-0.25, #3-0.125, #2-1 TABLET), TID
     Route: 048
  9. ADEMPAS [Concomitant]
     Active Substance: RIOCIGUAT
     Indication: Product used for unknown indication
     Route: 065

REACTIONS (17)
  - Sepsis [Unknown]
  - Fluid retention [Unknown]
  - Dyspnoea [Unknown]
  - Arrhythmia [Unknown]
  - Muscle spasms [Unknown]
  - Tremor [Unknown]
  - Panic attack [Unknown]
  - Underdose [Unknown]
  - Illness [Unknown]
  - Gastroenteritis viral [Unknown]
  - Palpitations [Unknown]
  - Peripheral swelling [Unknown]
  - Headache [Unknown]
  - Gastrooesophageal reflux disease [Unknown]
  - Diarrhoea [Unknown]
  - Pain in extremity [Unknown]
  - Diarrhoea [Unknown]
